FAERS Safety Report 13335821 (Version 1)
Quarter: 2017Q1

REPORT INFORMATION
  Report Type: Spontaneous
  Country: US (occurrence: US)
  Receive Date: 20170314
  Receipt Date: 20170314
  Transmission Date: 20170428
  Serious: No
  Sender: FDA-Public Use
  Company Number: GXBR2016US002860

PATIENT
  Age: 72 Year
  Sex: Female

DRUGS (6)
  1. LOVASTATIN. [Concomitant]
     Active Substance: LOVASTATIN
     Indication: BLOOD CHOLESTEROL
     Dosage: UNK DF, UNK
  2. LUMIGAN [Concomitant]
     Active Substance: BIMATOPROST
     Indication: GLAUCOMA
     Dosage: UNK DF, UNK
  3. EXPECTORANT [Concomitant]
     Active Substance: GUAIFENESIN
     Dosage: UNK DF, UNK
  4. AMOXICILLIN CAPSULES, USP [Suspect]
     Active Substance: AMOXICILLIN
     Indication: SINUSITIS
     Dosage: UNK DF, UNK
     Route: 065
  5. BUPROPION. [Concomitant]
     Active Substance: BUPROPION
     Indication: DEPRESSION
     Dosage: UNK DF, UNK
  6. COUGH SUPPRESSANTS AND EXPECTORANTS, COMBINAT [Concomitant]
     Dosage: UNK DF, UNK

REACTIONS (1)
  - Therapeutic response unexpected [Not Recovered/Not Resolved]
